FAERS Safety Report 19681253 (Version 1)
Quarter: 2021Q3

REPORT INFORMATION
  Report Type: Spontaneous
  Country: US (occurrence: US)
  Receive Date: 20210810
  Receipt Date: 20210810
  Transmission Date: 20211014
  Serious: No
  Sender: FDA-Public Use
  Company Number: US-IGSA-SR10010551

PATIENT
  Age: 46 Year
  Sex: Male

DRUGS (2)
  1. GAMUNEX?C [Suspect]
     Active Substance: HUMAN IMMUNOGLOBULIN G
     Dosage: 30 G, Q.M.T.
     Route: 042
     Dates: start: 201911
  2. GAMUNEX?C [Suspect]
     Active Substance: HUMAN IMMUNOGLOBULIN G
     Indication: HYPOGAMMAGLOBULINAEMIA
     Dosage: 30 GRAM, Q.4WK.
     Route: 042
     Dates: start: 20200605, end: 20200605

REACTIONS (6)
  - Peripheral swelling [Recovered/Resolved]
  - Red blood cell sedimentation rate increased [Unknown]
  - Haematocrit increased [Unknown]
  - Somnolence [Unknown]
  - Dizziness [Unknown]
  - Fatigue [Unknown]

NARRATIVE: CASE EVENT DATE: 20200605
